FAERS Safety Report 6798092-8 (Version None)
Quarter: 2010Q2

REPORT INFORMATION
  Report Type: 
  Country: None (occurrence: None)
  Receive Date: 20100623
  Receipt Date: 20100617
  Transmission Date: 20101027
  Serious: Yes (Death)
  Sender: FDA-Public Use
  Company Number: 2010US002225

PATIENT
  Age: 61 Year
  Sex: Male

DRUGS (4)
  1. PROGRAF [Suspect]
     Indication: RENAL TRANSPLANT
     Dosage: 1 MG, BID, UNKNOWN
  2. METOPROLOL SUCCINATE [Concomitant]
  3. TAMSULOSIN (TAMSULOSIN) FORMULATION UNKNOWN [Concomitant]
  4. VALCYTE [Concomitant]

REACTIONS (1)
  - DEATH [None]
